FAERS Safety Report 19820439 (Version 1)
Quarter: 2021Q3

REPORT INFORMATION
  Report Type: Spontaneous
  Country: US (occurrence: US)
  Receive Date: 20210909
  Receipt Date: 20210909
  Transmission Date: 20211014
  Serious: Yes (Hospitalization)
  Sender: FDA-Public Use
  Company Number: None

PATIENT
  Age: 34 Year
  Sex: Female

DRUGS (8)
  1. METRONIDAZOL [Concomitant]
     Active Substance: METRONIDAZOLE
  2. AMOX/K CLAV [Concomitant]
     Active Substance: AMOXICILLIN\CLAVULANATE POTASSIUM
  3. CEFPODOXIME [Concomitant]
     Active Substance: CEFPODOXIME
  4. SMZ/TMP DS [Concomitant]
     Active Substance: SULFAMETHOXAZOLE\TRIMETHOPRIM
  5. HUMIRA [Suspect]
     Active Substance: ADALIMUMAB
     Indication: CROHN^S DISEASE
     Route: 058
     Dates: start: 20210309
  6. CLINDAMYCIN. [Concomitant]
     Active Substance: CLINDAMYCIN
  7. HYDROCO/APAP [Concomitant]
     Active Substance: ACETAMINOPHEN\HYDROCODONE
  8. PREDNISONE. [Concomitant]
     Active Substance: PREDNISONE

REACTIONS (2)
  - Infection [None]
  - Colitis ulcerative [None]

NARRATIVE: CASE EVENT DATE: 20210804
